FAERS Safety Report 8435071-9 (Version None)
Quarter: 2012Q2

REPORT INFORMATION
  Report Type: 
  Country: None (occurrence: None)
  Receive Date: 20120614
  Receipt Date: 20120606
  Transmission Date: 20120825
  Serious: Yes (Death, Hospitalization, Other)
  Sender: FDA-Public Use
  Company Number: PHHY2012JP045502

PATIENT
  Sex: Male

DRUGS (4)
  1. EXELON [Suspect]
     Dosage: 13.5 MG, DAILY
     Route: 062
     Dates: start: 20110924, end: 20111027
  2. EXELON [Suspect]
     Indication: DEMENTIA ALZHEIMER'S TYPE
     Dosage: 4.5 MG, DAILY
     Route: 062
     Dates: start: 20110805, end: 20110825
  3. EXELON [Suspect]
     Dosage: 9 MG, DAILY
     Route: 062
     Dates: start: 20110826, end: 20110923
  4. EXELON [Suspect]
     Dosage: 18 MG, DAILY
     Route: 062
     Dates: start: 20111028, end: 20111207

REACTIONS (4)
  - FALL [None]
  - BACK PAIN [None]
  - PNEUMONIA [None]
  - SPINAL COMPRESSION FRACTURE [None]
